FAERS Safety Report 5147961-3 (Version None)
Quarter: 2006Q4

REPORT INFORMATION
  Report Type: 
  Country: None (occurrence: None)
  Receive Date: 20061106
  Receipt Date: 20061023
  Transmission Date: 20070319
  Serious: Yes (Hospitalization)
  Sender: FDA-Public Use
  Company Number: US017890

PATIENT
  Age: 8 Year
  Sex: Male
  Weight: 39.4629 kg

DRUGS (5)
  1. MODAFINIL [Suspect]
     Indication: ATTENTION DEFICIT/HYPERACTIVITY DISORDER
     Dosage: 425 MG QD ORAL
     Route: 048
     Dates: start: 20051202, end: 20060706
  2. MODAFINIL [Suspect]
     Indication: ATTENTION DEFICIT/HYPERACTIVITY DISORDER
     Dosage: 425 MG QD ORAL
     Route: 048
     Dates: start: 20060711, end: 20060713
  3. CHILDRENS CHEWABLE VITAMINS [Concomitant]
  4. ALBUTEROL [Concomitant]
  5. DIMETAPP [Concomitant]

REACTIONS (18)
  - ABNORMAL BEHAVIOUR [None]
  - AGGRESSION [None]
  - AUTISM [None]
  - CONDITION AGGRAVATED [None]
  - DRUG ADMINISTRATION ERROR [None]
  - EDUCATIONAL PROBLEM [None]
  - IMPULSIVE BEHAVIOUR [None]
  - INTENTIONAL SELF-INJURY [None]
  - INTERMITTENT EXPLOSIVE DISORDER [None]
  - LEARNING DISABILITY [None]
  - MOOD ALTERED [None]
  - NEGATIVISM [None]
  - OPPOSITIONAL DEFIANT DISORDER [None]
  - POST-TRAUMATIC STRESS DISORDER [None]
  - REACTIVE ATTACHMENT DISORDER OF INFANCY OR EARLY CHILDHOOD [None]
  - SOCIAL PROBLEM [None]
  - SPEECH DISORDER [None]
  - THEFT [None]
